FAERS Safety Report 7087853-6 (Version None)
Quarter: 2010Q4

REPORT INFORMATION
  Report Type: 
  Country: None (occurrence: None)
  Receive Date: 20101108
  Receipt Date: 20101027
  Transmission Date: 20110411
  Serious: Yes (Other)
  Sender: FDA-Public Use
  Company Number: JP-JNJFOC-20101100349

PATIENT
  Sex: Female

DRUGS (3)
  1. RISPERDAL [Suspect]
     Indication: ILL-DEFINED DISORDER
     Route: 048
  2. ZYPREXA [Suspect]
     Indication: ILL-DEFINED DISORDER
     Route: 048
  3. SELECTIVE SEROTONIN REUPTAKE INHIBITORS [Suspect]
     Indication: ILL-DEFINED DISORDER
     Route: 065

REACTIONS (2)
  - FALL [None]
  - LOSS OF CONSCIOUSNESS [None]
